FAERS Safety Report 5166092-X (Version None)
Quarter: 2006Q4

REPORT INFORMATION
  Report Type: 
  Country: None (occurrence: None)
  Receive Date: 20061129
  Receipt Date: 20061120
  Transmission Date: 20070319
  Serious: Yes (Other)
  Sender: FDA-Public Use
  Company Number: 163-20785-06110411

PATIENT
  Age: 52 Year
  Sex: Female

DRUGS (1)
  1. THALOMID [Suspect]
     Indication: MULTIPLE MYELOMA
     Dosage: 50 - 400 MG DAILY ORAL
     Route: 048
     Dates: start: 20060511, end: 20061001

REACTIONS (6)
  - EXCORIATION [None]
  - FEELING ABNORMAL [None]
  - HYPERAESTHESIA [None]
  - NEUROPATHY PERIPHERAL [None]
  - OPHTHALMOPLEGIA [None]
  - PARAESTHESIA [None]
